FAERS Safety Report 17592665 (Version 2)
Quarter: 2020Q2

REPORT INFORMATION
  Report Type: Report from Study
  Country: None (occurrence: US)
  Receive Date: 20200327
  Receipt Date: 20200403
  Transmission Date: 20200713
  Serious: Yes (Death, Other)
  Sender: FDA-Public Use
  Company Number: US-ABBVIE-20K-163-3335278-00

PATIENT
  Age: 79 Year
  Sex: Male
  Weight: 68.1 kg

DRUGS (2)
  1. DUOPA [Suspect]
     Active Substance: CARBIDOPA\LEVODOPA
     Indication: PRODUCT USED FOR UNKNOWN INDICATION
     Route: 050
     Dates: start: 20190418, end: 20200318
  2. FINASTERIDE. [Concomitant]
     Active Substance: FINASTERIDE
     Indication: PROSTATOMEGALY

REACTIONS (5)
  - Hypertension [Not Recovered/Not Resolved]
  - Device breakage [Unknown]
  - Mobility decreased [Not Recovered/Not Resolved]
  - Device expulsion [Unknown]
  - Off label use of device [Not Recovered/Not Resolved]

NARRATIVE: CASE EVENT DATE: 20200317
